FAERS Safety Report 8188518-X (Version None)
Quarter: 2012Q1

REPORT INFORMATION
  Report Type: 
  Country: None (occurrence: None)
  Receive Date: 20120306
  Receipt Date: 20120301
  Transmission Date: 20120608
  Serious: Yes (Other)
  Sender: FDA-Public Use
  Company Number: PHHY2012DE006030

PATIENT
  Sex: Female
  Weight: 80 kg

DRUGS (6)
  1. ZOMETA [Suspect]
     Indication: BREAST CANCER
     Dosage: 4 MG, TWICE PER YEAR
     Dates: start: 20111214
  2. BISOPROLOL FUMARATE [Concomitant]
     Dosage: 1 DAILY
  3. METFORMIN HCL [Concomitant]
     Dosage: 1 DAILY
  4. RAMIPRIL [Concomitant]
     Dosage: 1 DAILY
  5. DEKRISTOL [Concomitant]
     Dosage: UNK
  6. CALCICARE [Concomitant]
     Indication: IRIDOCYCLITIS
     Dosage: UNK

REACTIONS (2)
  - IRIDOCYCLITIS [None]
  - ARTHRALGIA [None]
